FAERS Safety Report 5927109-5 (Version None)
Quarter: 2008Q4

REPORT INFORMATION
  Report Type: 
  Country: None (occurrence: None)
  Receive Date: 20081022
  Receipt Date: 20081017
  Transmission Date: 20090506
  Serious: Yes (Other)
  Sender: FDA-Public Use
  Company Number: JP-ROXANE LABORATORIES, INC.-2008-RO-00139RO

PATIENT
  Age: 58 Year
  Sex: Male
  Weight: 53 kg

DRUGS (6)
  1. BUTORPHANOL [Suspect]
     Indication: INSOMNIA
  2. MIDAZOLAM HCL [Suspect]
     Indication: INSOMNIA
  3. REMIFENTANIL [Suspect]
     Indication: PAIN
  4. REMIFENTANIL [Suspect]
     Indication: AGITATION
  5. LIDOCAINE 1% W/ EPINEPHRINE 1:200,000 [Suspect]
     Indication: TRACHEOSTOMY
  6. OXYGEN [Suspect]

REACTIONS (2)
  - DRUG INTERACTION [None]
  - DRUG WITHDRAWAL SYNDROME [None]
